FAERS Safety Report 7102867-5 (Version None)
Quarter: 2010Q4

REPORT INFORMATION
  Report Type: 
  Country: None (occurrence: None)
  Receive Date: 20101115
  Receipt Date: 20101102
  Transmission Date: 20110411
  Serious: Yes (Hospitalization, Other)
  Sender: FDA-Public Use
  Company Number: US-ELI_LILLY_AND_COMPANY-US201004004707

PATIENT
  Sex: Female

DRUGS (11)
  1. FORTEO [Suspect]
     Indication: OSTEOPOROSIS
     Dosage: 20 UG, DAILY (1/D)
     Dates: start: 20100101
  2. OSCAL /00108001/ [Concomitant]
  3. SINGULAIR [Concomitant]
  4. ADVAIR DISKUS 100/50 [Concomitant]
  5. LEVBID [Concomitant]
  6. DILTIAZEM [Concomitant]
  7. NEXIUM [Concomitant]
  8. VENTOLIN [Concomitant]
     Dosage: 1 D/F, AS NEEDED
  9. FINACEA [Concomitant]
  10. METROGEL [Concomitant]
  11. MULTI-VITAMIN [Concomitant]

REACTIONS (1)
  - BREAST CANCER [None]
